FAERS Safety Report 8444168-9 (Version None)
Quarter: 2012Q2

REPORT INFORMATION
  Report Type: 
  Country: None (occurrence: None)
  Receive Date: 20120612
  Receipt Date: 20120517
  Transmission Date: 20120825
  Serious: Yes (Life-Threatening, Other)
  Sender: FDA-Public Use
  Company Number: 001242963A

PATIENT
  Age: 52 Year
  Sex: Female

DRUGS (2)
  1. PROACTIV REFINING MASK [Suspect]
     Indication: ACNE
     Dosage: ONCE DERMAL
     Route: 061
     Dates: start: 20120320
  2. BLOOD PRESSURE MEDICATION [Concomitant]

REACTIONS (3)
  - SWELLING FACE [None]
  - EYE SWELLING [None]
  - DYSPNOEA [None]
